FAERS Safety Report 8836042 (Version 5)
Quarter: 2012Q4

REPORT INFORMATION
  Report Type: 
  Country: US (occurrence: US)
  Receive Date: 20121011
  Receipt Date: 20121205
  Transmission Date: 20130627
  Serious: Yes (Hospitalization, Other)
  Sender: FDA-Public Use
  Company Number: US-009507513-1210USA001080

PATIENT
  Age: 59 None
  Sex: Female

DRUGS (5)
  1. PEG-INTRON [Suspect]
     Indication: HEPATITIS C
     Dosage: UNK
     Dates: start: 20080101, end: 20080401
  2. PEG-INTRON [Suspect]
     Dosage: UNK
     Dates: start: 20120928, end: 20121115
  3. REBETOL [Suspect]
     Indication: HEPATITIS C
     Dosage: UNK
     Route: 048
     Dates: start: 20080101, end: 20080401
  4. REBETOL [Suspect]
     Dosage: UNK
     Route: 048
     Dates: start: 20120928, end: 20121115
  5. TELAPREVIR [Concomitant]
     Indication: HEPATITIS C
     Dosage: UNK
     Dates: start: 20120928, end: 20121115

REACTIONS (11)
  - Transfusion [Unknown]
  - Drug ineffective [Unknown]
  - Fatigue [Unknown]
  - Influenza like illness [Unknown]
  - Oropharyngeal pain [Unknown]
  - Cough [Unknown]
  - Decreased appetite [Unknown]
  - Fatigue [Unknown]
  - Nausea [Unknown]
  - Pyrexia [Unknown]
  - White blood cell count decreased [Unknown]
